FAERS Safety Report 6669487-8 (Version None)
Quarter: 2010Q2

REPORT INFORMATION
  Report Type: 
  Country: None (occurrence: None)
  Receive Date: 20100406
  Receipt Date: 20100329
  Transmission Date: 20101027
  Serious: Yes (Other)
  Sender: FDA-Public Use
  Company Number: PHEH2010US01889

PATIENT
  Sex: Female

DRUGS (5)
  1. TEGRETOL [Suspect]
     Dosage: 200 MG, UNK
     Dates: end: 20100129
  2. TEGRETOL [Suspect]
     Dosage: 400 MG, ONE TIME DOSE
     Dates: start: 20100129, end: 20100129
  3. TEGRETOL [Suspect]
     Dosage: 200 MG, ONE TIME DOSE
     Dates: start: 20100129, end: 20100129
  4. TEGRETOL [Suspect]
     Dosage: 200 MG IN AM, 200 MG IN PM
     Dates: start: 20100130
  5. ALBUTEROL [Concomitant]
     Dosage: UNK, UNK

REACTIONS (4)
  - DRUG LEVEL DECREASED [None]
  - FATIGUE [None]
  - FEELING ABNORMAL [None]
  - PANIC ATTACK [None]
